FAERS Safety Report 9053836 (Version 3)
Quarter: 2013Q1

REPORT INFORMATION
  Report Type: Report from Study
  Country: JP (occurrence: JP)
  Receive Date: 20130207
  Receipt Date: 20130326
  Transmission Date: 20140127
  Serious: Yes (Death)
  Sender: FDA-Public Use
  Company Number: JP-GLAXOSMITHKLINE-B0864668A

PATIENT
  Age: 73 None
  Sex: Male
  Weight: 55 kg

DRUGS (21)
  1. SAMTIREL [Suspect]
     Indication: PNEUMOCYSTIS JIROVECII PNEUMONIA
     Dosage: 750MG TWICE PER DAY
     Route: 048
     Dates: start: 20121205, end: 20121224
  2. SAMTIREL [Suspect]
     Indication: ANTIFUNGAL PROPHYLAXIS
     Dosage: 1500MG PER DAY
     Route: 048
     Dates: start: 20121229, end: 20130106
  3. VALTREX [Suspect]
     Dosage: 1000MG THREE TIMES PER DAY
     Route: 048
     Dates: start: 20121227, end: 20130102
  4. HERBESSER R [Suspect]
     Dosage: 100MG PER DAY
     Route: 048
     Dates: end: 20130106
  5. PREDONINE [Suspect]
     Indication: INTERSTITIAL LUNG DISEASE
     Dosage: 40MG PER DAY
     Route: 048
     Dates: start: 20121102, end: 20121112
  6. PREDONINE [Suspect]
     Indication: INTERSTITIAL LUNG DISEASE
     Dosage: 30MG PER DAY
     Route: 048
     Dates: start: 20121113, end: 20121121
  7. PREDONINE [Suspect]
     Indication: INTERSTITIAL LUNG DISEASE
     Dosage: 20MG PER DAY
     Route: 048
     Dates: start: 20121122, end: 20121203
  8. PREDONINE [Suspect]
     Indication: INTERSTITIAL LUNG DISEASE
     Dosage: 60MG PER DAY
     Route: 048
     Dates: start: 20121203, end: 20121205
  9. PROTECADIN [Suspect]
     Dosage: 10MG TWICE PER DAY
     Route: 048
     Dates: start: 20121102, end: 20130106
  10. LAC-B [Suspect]
     Dosage: 1MG THREE TIMES PER DAY
     Route: 048
     Dates: start: 20121115, end: 20130106
  11. PURSENNID [Suspect]
     Dosage: 24MG PER DAY
     Route: 048
     Dates: start: 20121129, end: 20130106
  12. MUCOSTA [Suspect]
     Dosage: 100MG TWICE PER DAY
     Route: 048
     Dates: start: 20121130, end: 20130106
  13. ETODOLAC [Suspect]
     Dosage: 200MG TWICE PER DAY
     Route: 048
     Dates: start: 20121130, end: 20121207
  14. BAKTAR [Suspect]
     Indication: PNEUMOCYSTIS JIROVECII PNEUMONIA
     Dosage: 2G TWICE PER DAY
     Route: 048
     Dates: start: 20121203, end: 20121204
  15. BAKTAR [Suspect]
     Indication: INTERSTITIAL LUNG DISEASE
     Dosage: 2G PER DAY
     Route: 048
     Dates: start: 20121225, end: 20121228
  16. FUNGUARD [Suspect]
     Dosage: 100MG PER DAY
     Route: 042
     Dates: start: 20121207, end: 20121225
  17. HYPEN [Suspect]
     Dosage: 200MG TWICE PER DAY
     Route: 048
     Dates: start: 20121208, end: 20130106
  18. WARFARIN [Suspect]
     Dosage: 2MG PER DAY
     Route: 048
     Dates: start: 20121219, end: 20121228
  19. WARFARIN [Suspect]
     Dosage: 1.5MG PER DAY
     Route: 048
     Dates: start: 20121229, end: 20121230
  20. WARFARIN [Suspect]
     Dosage: 1MG PER DAY
     Route: 048
     Dates: start: 20121231, end: 20130106
  21. ACICLOVIR [Suspect]
     Dosage: 250MG TWICE PER DAY
     Route: 042
     Dates: start: 20121225, end: 20121227

REACTIONS (3)
  - Henoch-Schonlein purpura [Fatal]
  - Thrombocytopenia [Fatal]
  - Blood urea increased [Fatal]
